FAERS Safety Report 4561546-9 (Version None)
Quarter: 2005Q1

REPORT INFORMATION
  Report Type: 
  Country: None (occurrence: None)
  Receive Date: 20050121
  Receipt Date: 20050112
  Transmission Date: 20050727
  Serious: Yes (Death, Hospitalization)
  Sender: FDA-Public Use
  Company Number: F03200500005

PATIENT
  Age: 85 Year
  Sex: Male

DRUGS (2)
  1. OXALIPLATIN - SOLUTION - 110 MG/M2 [Suspect]
     Indication: RECTAL CANCER
     Dosage: 60 MG/M2 1/WEEK - INTRAVENOUS NOS
     Route: 042
     Dates: start: 20041213, end: 20041213
  2. CAPECITABINE - TABLET [Suspect]
     Indication: RECTAL CANCER
     Dosage: 3000 MG QD - ORAL
     Route: 048
     Dates: start: 20041129, end: 20041217

REACTIONS (4)
  - BLOOD CREATININE INCREASED [None]
  - DEHYDRATION [None]
  - DIARRHOEA [None]
  - GENERAL PHYSICAL HEALTH DETERIORATION [None]
